FAERS Safety Report 8772845 (Version 2)
Quarter: 2012Q4

REPORT INFORMATION
  Report Type: 
  Country: BR (occurrence: BR)
  Receive Date: 20120907
  Receipt Date: 20121025
  Transmission Date: 20130627
  Serious: Yes (Death, Hospitalization)
  Sender: FDA-Public Use
  Company Number: BR-PFIZER INC-2012030319

PATIENT
  Age: 59 Year
  Sex: Female
  Weight: 38.6 kg

DRUGS (2)
  1. SUTENT [Suspect]
     Indication: METASTATIC RENAL CELL CARCINOMA
     Dosage: 50 mg, 1x/day (cycle 4 to 2)
     Route: 048
     Dates: start: 20120126
  2. CODEINE [Suspect]
     Indication: PAIN

REACTIONS (16)
  - Disease progression [Fatal]
  - Renal cancer [Fatal]
  - Femur fracture [Unknown]
  - Nausea [Recovered/Resolved]
  - Oral pain [Unknown]
  - Glossodynia [Unknown]
  - Fatigue [Unknown]
  - Back pain [Not Recovered/Not Resolved]
  - Aphthous stomatitis [Not Recovered/Not Resolved]
  - Fatigue [Not Recovered/Not Resolved]
  - Decreased appetite [Not Recovered/Not Resolved]
  - Nausea [Unknown]
  - Feeling abnormal [Recovering/Resolving]
  - Blood test abnormal [Recovering/Resolving]
  - Malaise [Unknown]
  - Drug intolerance [Unknown]
